FAERS Safety Report 11787609 (Version 1)
Quarter: 2015Q4

REPORT INFORMATION
  Report Type: Spontaneous
  Country: US (occurrence: US)
  Receive Date: 20151130
  Receipt Date: 20151130
  Transmission Date: 20160305
  Serious: No
  Sender: FDA-Public Use
  Company Number: US-BAYER-2015-479238

PATIENT
  Age: 2 Year
  Sex: Female
  Weight: 11.34 kg

DRUGS (2)
  1. CHILDREN CLARITIN ALLERGY [Suspect]
     Active Substance: LORATADINE
     Dosage: UNK
     Route: 048
  2. CHILDREN CLARITIN ALLERGY [Suspect]
     Active Substance: LORATADINE
     Dosage: 17 ML, ONCE
     Route: 048
     Dates: start: 20151129, end: 20151129

REACTIONS (2)
  - Accidental exposure to product by child [None]
  - Product use issue [None]

NARRATIVE: CASE EVENT DATE: 20151129
